FAERS Safety Report 25263546 (Version 1)
Quarter: 2025Q2

REPORT INFORMATION
  Report Type: Report from Study
  Country: IT (occurrence: IT)
  Receive Date: 20250502
  Receipt Date: 20250502
  Transmission Date: 20250716
  Serious: Yes (Other)
  Sender: MYLAN
  Company Number: IT-MYLANLABS-2025M1036932

PATIENT
  Age: 83 Year
  Sex: Male

DRUGS (8)
  1. AMIODARONE [Suspect]
     Active Substance: AMIODARONE
     Indication: Atrial flutter
     Dosage: 600 MILLIGRAM, QD
  2. AMIODARONE [Suspect]
     Active Substance: AMIODARONE
     Dosage: 600 MILLIGRAM, QD
  3. AMIODARONE [Suspect]
     Active Substance: AMIODARONE
     Dosage: 600 MILLIGRAM, QD
     Route: 048
  4. AMIODARONE [Suspect]
     Active Substance: AMIODARONE
     Dosage: 600 MILLIGRAM, QD
     Route: 048
  5. AMIODARONE [Suspect]
     Active Substance: AMIODARONE
     Dosage: 200 MILLIGRAM, QD
  6. AMIODARONE [Suspect]
     Active Substance: AMIODARONE
     Dosage: 200 MILLIGRAM, QD
  7. AMIODARONE [Suspect]
     Active Substance: AMIODARONE
     Dosage: 200 MILLIGRAM, QD
     Route: 048
  8. AMIODARONE [Suspect]
     Active Substance: AMIODARONE
     Dosage: 200 MILLIGRAM, QD
     Route: 048

REACTIONS (2)
  - Cornea verticillata [Not Recovered/Not Resolved]
  - Dry eye [Not Recovered/Not Resolved]
